FAERS Safety Report 8884038 (Version 1)
Quarter: 2012Q4

REPORT INFORMATION
  Report Type: 
  Country: US (occurrence: US)
  Receive Date: 20121102
  Receipt Date: 20121102
  Transmission Date: 20130627
  Serious: No
  Sender: FDA-Public Use
  Company Number: US-ASTRAZENECA-2012SE27386

PATIENT
  Age: 55 Year
  Sex: Male
  Weight: 99.8 kg

DRUGS (3)
  1. CRESTOR [Suspect]
     Route: 048
  2. SEROQUEL [Suspect]
     Indication: BIPOLAR DISORDER
     Route: 048
  3. VALIUM [Concomitant]

REACTIONS (2)
  - Therapeutic response unexpected [Unknown]
  - Weight increased [Unknown]
